FAERS Safety Report 9646789 (Version 1)
Quarter: 2013Q4

REPORT INFORMATION
  Report Type: Spontaneous
  Country: US (occurrence: US)
  Receive Date: 20131027
  Receipt Date: 20131027
  Transmission Date: 20140711
  Serious: No
  Sender: FDA-Public Use
  Company Number: US-PURDUE-USA-2013-0104140

PATIENT
  Sex: Male

DRUGS (3)
  1. OXYCODONE HCL IMMEDIATE RELEASE (91-490) [Suspect]
     Indication: SCIATICA
     Dosage: 30 MG, QID
     Route: 048
  2. OXYCODONE HCL IMMEDIATE RELEASE (91-490) [Suspect]
     Indication: INTERVERTEBRAL DISC PROTRUSION
  3. OXYCODONE HCL IMMEDIATE RELEASE (91-490) [Suspect]
     Indication: INTERVERTEBRAL DISC DEGENERATION

REACTIONS (2)
  - Extra dose administered [Unknown]
  - Inadequate analgesia [Unknown]
